FAERS Safety Report 9310643 (Version 1)
Quarter: 2013Q2

REPORT INFORMATION
  Report Type: Spontaneous
  Country: US (occurrence: US)
  Receive Date: 20130527
  Receipt Date: 20130527
  Transmission Date: 20140414
  Serious: Yes (Hospitalization)
  Sender: FDA-Public Use
  Company Number: US-UCBSA-086339

PATIENT
  Age: 84 Year
  Sex: Female
  Weight: 37.7 kg

DRUGS (2)
  1. NEUPRO [Suspect]
     Indication: PARKINSON^S DISEASE
     Route: 062
     Dates: start: 20130321, end: 2013
  2. SINEMET [Concomitant]
     Indication: PARKINSON^S DISEASE
     Dosage: DOSE PER INTAKE: 1, DAILY DOSE: 1
     Route: 048

REACTIONS (5)
  - Application site reaction [Unknown]
  - Tremor [Recovered/Resolved]
  - Nausea [Recovered/Resolved]
  - Anxiety [Recovered/Resolved]
  - Gait disturbance [Recovered/Resolved]
